FAERS Safety Report 7030166-9 (Version None)
Quarter: 2010Q4

REPORT INFORMATION
  Report Type: 
  Country: None (occurrence: None)
  Receive Date: 20101006
  Receipt Date: 20101004
  Transmission Date: 20110411
  Serious: Yes (Death, Life-Threatening, Other)
  Sender: FDA-Public Use
  Company Number: JP-SANOFI-AVENTIS-2010SA038563

PATIENT
  Age: 85 Year
  Sex: Male
  Weight: 50 kg

DRUGS (6)
  1. CLEXANE [Suspect]
     Indication: BLADDER OPERATION
     Route: 058
     Dates: start: 20100323, end: 20100331
  2. ASPIRIN [Suspect]
     Indication: HYPERTENSION
     Dates: start: 20100324, end: 20100331
  3. PANTOL [Concomitant]
     Route: 051
     Dates: start: 20100320, end: 20100330
  4. GASTER [Concomitant]
     Route: 051
     Dates: start: 20100320, end: 20100330
  5. ZOSYN [Concomitant]
     Indication: INFECTION PROPHYLAXIS
     Route: 051
     Dates: start: 20100326, end: 20100331
  6. CEFAZOLIN SODIUM [Concomitant]
     Route: 051
     Dates: start: 20100318, end: 20100321

REACTIONS (7)
  - ANAEMIA [None]
  - HAEMATOCRIT DECREASED [None]
  - HAEMOGLOBIN DECREASED [None]
  - POST PROCEDURAL HAEMATOMA [None]
  - RED BLOOD CELL COUNT DECREASED [None]
  - SEPSIS [None]
  - WOUND INFECTION [None]
